FAERS Safety Report 4731312-X (Version None)
Quarter: 2005Q3

REPORT INFORMATION
  Report Type: 
  Country: None (occurrence: None)
  Receive Date: 20050802
  Receipt Date: 20050720
  Transmission Date: 20060218
  Serious: Yes (Hospitalization)
  Sender: FDA-Public Use
  Company Number: CA-AMGEN-US142733

PATIENT
  Sex: Male

DRUGS (6)
  1. NEUPOGEN [Suspect]
     Indication: AGRANULOCYTOSIS
     Dates: start: 19910101
  2. BUPROPION [Concomitant]
  3. DIAZEPAM [Concomitant]
  4. OLANZAPINE [Concomitant]
  5. CELEBREX [Concomitant]
  6. ATORVASTATIN CALCIUM [Concomitant]

REACTIONS (5)
  - CELLULITIS [None]
  - CLOSTRIDIAL INFECTION [None]
  - DRUG EFFECT DECREASED [None]
  - INFECTION [None]
  - PNEUMONIA [None]
